FAERS Safety Report 4595561-6 (Version None)
Quarter: 2005Q1

REPORT INFORMATION
  Report Type: 
  Country: None (occurrence: None)
  Receive Date: 20050224
  Receipt Date: 20050203
  Transmission Date: 20050727
  Serious: Yes (Other)
  Sender: FDA-Public Use
  Company Number: US_0502112037

PATIENT
  Age: 58 Year
  Sex: Female

DRUGS (20)
  1. STRATTERA [Suspect]
     Dates: end: 20040101
  2. GABITRIL [Concomitant]
  3. IMITREX [Concomitant]
  4. CLONAZEPAM [Concomitant]
  5. LIDODERM (LIDOCAINE JELLY) [Concomitant]
  6. HYDROCODONE BITARTRATE [Concomitant]
  7. CELEBREX [Concomitant]
  8. AVAPRO [Concomitant]
  9. ALLEGRA [Concomitant]
  10. NEXIUM [Concomitant]
  11. NORVASC [Concomitant]
  12. EFFEXOR [Concomitant]
  13. DITROPAN XL [Concomitant]
  14. RANITIDINE [Concomitant]
  15. ARIMIDEX [Concomitant]
  16. TRAZODONE HCL [Concomitant]
  17. PERCOCET [Concomitant]
  18. TRICOR [Concomitant]
  19. VITAMINS [Concomitant]
  20. SEROQUEL [Concomitant]

REACTIONS (4)
  - JOINT INJURY [None]
  - MYOCLONUS [None]
  - PLASTIC SURGERY TO THE FACE [None]
  - POST PROCEDURAL COMPLICATION [None]
